FAERS Safety Report 10196782 (Version 1)
Quarter: 2014Q2

REPORT INFORMATION
  Report Type: Spontaneous
  Country: US (occurrence: None)
  Receive Date: 20140523
  Receipt Date: 20140523
  Transmission Date: 20141212
  Serious: Yes (Death)
  Sender: FDA-Public Use
  Company Number: None

PATIENT
  Age: 47 Year
  Sex: Female

DRUGS (4)
  1. AMITRIPTYLINE [Suspect]
     Indication: DEPRESSION
     Route: 048
     Dates: start: 20140201, end: 20140315
  2. XANAX [Concomitant]
  3. PRAZOSIN [Concomitant]
  4. MORPHINE [Concomitant]

REACTIONS (1)
  - Antidepressant drug level increased [None]
